FAERS Safety Report 7014830-3 (Version None)
Quarter: 2010Q3

REPORT INFORMATION
  Report Type: 
  Country: None (occurrence: None)
  Receive Date: 20100927
  Receipt Date: 20100412
  Transmission Date: 20110219
  Serious: No
  Sender: FDA-Public Use
  Company Number: US-MYLANLABS-2010S1003746

PATIENT
  Age: 87 Year
  Sex: Female

DRUGS (3)
  1. FUROSEMIDE TABLETS, USP [Suspect]
     Indication: OEDEMA PERIPHERAL
     Route: 048
     Dates: start: 20100201, end: 20100101
  2. VITAMIN D [Concomitant]
     Indication: VITAMIN SUPPLEMENTATION
     Route: 048
  3. AMIODARONE HCL [Concomitant]
     Indication: BLOOD PRESSURE INCREASED
     Route: 048

REACTIONS (5)
  - ABDOMINAL DISTENSION [None]
  - ABNORMAL FAECES [None]
  - DIARRHOEA [None]
  - FAECES DISCOLOURED [None]
  - FREQUENT BOWEL MOVEMENTS [None]
